FAERS Safety Report 20994443 (Version 1)
Quarter: 2022Q2

REPORT INFORMATION
  Report Type: Spontaneous
  Country: FR (occurrence: FR)
  Receive Date: 20220622
  Receipt Date: 20220622
  Transmission Date: 20220721
  Serious: Yes (Other)
  Sender: FDA-Public Use
  Company Number: FR-AMERICAN REGENT INC-2022001727

PATIENT
  Age: 77 Year
  Sex: Female
  Weight: 55 kg

DRUGS (7)
  1. FERINJECT [Suspect]
     Active Substance: FERRIC CARBOXYMALTOSE
     Indication: Iron deficiency anaemia
     Dosage: 1 GM (1 GM,1 IN 1 TOTAL)
     Dates: start: 20220301, end: 20220301
  2. CARBOPLATIN [Suspect]
     Active Substance: CARBOPLATIN
     Indication: Uterine cancer
     Dosage: C1 (440 MG,1 IN 1 CYCLICAL)
     Dates: start: 20220301
  3. PACLITAXEL [Suspect]
     Active Substance: PACLITAXEL
     Indication: Uterine cancer
     Dosage: C1 (270 MG,1 IN 1 CYCLICAL)
     Dates: start: 20220301
  4. PRIMPERAN [Suspect]
     Active Substance: METOCLOPRAMIDE HYDROCHLORIDE
     Indication: Prophylaxis of nausea and vomiting
     Dosage: 10 MILLIGRAM, PRN (ONCE DAILY ON DEMAND)
     Route: 048
     Dates: start: 20220302, end: 20220306
  5. EMEND [Suspect]
     Active Substance: APREPITANT
     Indication: Prophylaxis of nausea and vomiting
     Dosage: 125 MG (125 MG,1 IN 1 TOTAL)
     Route: 048
     Dates: start: 20220301, end: 20220301
  6. EMEND [Suspect]
     Active Substance: APREPITANT
     Dosage: 80 MG (80 MG,1 IN 1 D)
     Route: 048
     Dates: start: 20220302, end: 20220303
  7. FILGRASTIM [Suspect]
     Active Substance: FILGRASTIM
     Indication: Prophylaxis
     Dosage: 48 INTERNATIONAL UNIT (48 MILLION INTERNATIONAL UNIT,1 IN 1 D)
     Route: 058
     Dates: start: 20220303, end: 20220307

REACTIONS (1)
  - Cholestatic liver injury [Recovered/Resolved]

NARRATIVE: CASE EVENT DATE: 20220318
